FAERS Safety Report 24900894 (Version 3)
Quarter: 2025Q1

REPORT INFORMATION
  Report Type: Spontaneous
  Country: JP (occurrence: JP)
  Receive Date: 20250129
  Receipt Date: 20250328
  Transmission Date: 20250409
  Serious: Yes (Death, Life-Threatening, Hospitalization)
  Sender: EISAI
  Company Number: JP-Eisai-202413992_LEN-EC_P_1

PATIENT
  Age: 56 Year
  Sex: Female

DRUGS (3)
  1. LENVIMA [Suspect]
     Active Substance: LENVATINIB
     Indication: Endometrial cancer
     Dates: start: 20221202, end: 20221216
  2. LENVIMA [Suspect]
     Active Substance: LENVATINIB
     Dates: start: 20230526, end: 20230528
  3. KEYTRUDA [Suspect]
     Active Substance: PEMBROLIZUMAB
     Indication: Endometrial cancer
     Dates: start: 20221202, end: 202501

REACTIONS (1)
  - Viral myocarditis [Fatal]

NARRATIVE: CASE EVENT DATE: 20250116
